FAERS Safety Report 6009416-3 (Version None)
Quarter: 2008Q4

REPORT INFORMATION
  Report Type: 
  Country: None (occurrence: None)
  Receive Date: 20081217
  Receipt Date: 20081126
  Transmission Date: 20090506
  Serious: No
  Sender: FDA-Public Use
  Company Number: US-BAYER-200833692NA

PATIENT
  Age: 17 Year
  Sex: Female
  Weight: 54 kg

DRUGS (1)
  1. YAZ [Suspect]
     Indication: CONTRACEPTION
     Route: 048
     Dates: start: 20080903, end: 20080911

REACTIONS (5)
  - AFFECT LABILITY [None]
  - ANXIETY [None]
  - CRYING [None]
  - DEPRESSED MOOD [None]
  - NO ADVERSE EVENT [None]
